FAERS Safety Report 16458550 (Version 1)
Quarter: 2019Q2

REPORT INFORMATION
  Report Type: Spontaneous
  Country: US (occurrence: US)
  Receive Date: 20190620
  Receipt Date: 20190620
  Transmission Date: 20190711
  Serious: No
  Sender: FDA-Public Use
  Company Number: US-THERAPEUTICSMD-2019TMD00443

PATIENT
  Age: 48 Year
  Sex: Female
  Weight: 81.63 kg

DRUGS (7)
  1. MACA [Concomitant]
  2. COLLAGEN [Concomitant]
     Active Substance: COLLAGEN
  3. IMVEXXY [Suspect]
     Active Substance: ESTRADIOL
     Indication: VESTIBULITIS
  4. VITAMIN E [Concomitant]
     Active Substance: .ALPHA.-TOCOPHEROL
  5. HAIR, SKIN, AND NAILS EXTRA STRENGTH [Concomitant]
  6. MAGNESIUM WITH VITAMIN D AND ZINC [Concomitant]
  7. IMVEXXY [Suspect]
     Active Substance: ESTRADIOL
     Indication: VULVOVAGINAL PAIN
     Dosage: 10 ?G, 2X/WEEK BEFORE BED
     Route: 067
     Dates: start: 20190314

REACTIONS (2)
  - Off label use [Not Recovered/Not Resolved]
  - Vaginal discharge [Not Recovered/Not Resolved]

NARRATIVE: CASE EVENT DATE: 20190314
